FAERS Safety Report 8214196-7 (Version None)
Quarter: 2012Q1

REPORT INFORMATION
  Report Type: 
  Country: None (occurrence: None)
  Receive Date: 20120316
  Receipt Date: 20120312
  Transmission Date: 20120608
  Serious: Yes (Other)
  Sender: FDA-Public Use
  Company Number: US-PFIZER INC-2012066239

PATIENT
  Sex: Female

DRUGS (2)
  1. ZOLOFT [Suspect]
     Dosage: UNK
     Dates: end: 20120101
  2. LYRICA [Suspect]
     Dosage: UNK

REACTIONS (6)
  - RESTLESS LEGS SYNDROME [None]
  - FIBROMYALGIA [None]
  - PNEUMONIA [None]
  - BIPOLAR DISORDER [None]
  - FEELING ABNORMAL [None]
  - NERVOUS SYSTEM DISORDER [None]
